FAERS Safety Report 6076750-0 (Version None)
Quarter: 2009Q1

REPORT INFORMATION
  Report Type: 
  Country: None (occurrence: None)
  Receive Date: 20090213
  Receipt Date: 20090113
  Transmission Date: 20090719
  Serious: No
  Sender: FDA-Public Use
  Company Number: US-BAYER-200910059BCC

PATIENT
  Age: 76 Year
  Sex: Male
  Weight: 95 kg

DRUGS (3)
  1. ALEVE [Suspect]
     Indication: ARTHRALGIA
     Dosage: TOTAL DAILY DOSE: 220 MG  UNIT DOSE: 220 MG
     Dates: start: 20081222, end: 20090104
  2. UNKNOWN PRESCRIPTION ARTHRITIS MEDICATION [Suspect]
     Indication: ARTHRITIS
  3. TYLENOL [Concomitant]

REACTIONS (1)
  - BLOOD COUNT ABNORMAL [None]
